FAERS Safety Report 5200302-5 (Version None)
Quarter: 2006Q4

REPORT INFORMATION
  Report Type: 
  Country: None (occurrence: None)
  Receive Date: 20061016
  Receipt Date: 20060814
  Transmission Date: 20070319
  Serious: No
  Sender: FDA-Public Use
  Company Number: 2006SP002998

PATIENT
  Age: 70 Year
  Sex: Female
  Weight: 52.1637 kg

DRUGS (6)
  1. LUNESTA [Suspect]
     Indication: INSOMNIA
     Dosage: 2 MG;PRN;ORAL
     Route: 048
     Dates: start: 20060701
  2. TRIAMTEREENE [Concomitant]
  3. ZETIA [Concomitant]
  4. ATORVASTATIN CALCIUM [Concomitant]
  5. NEXIUM [Concomitant]
  6. ACETYLSALIYCLIC ACID [Concomitant]

REACTIONS (1)
  - DRUG EFFECT DECREASED [None]
